FAERS Safety Report 9258298 (Version 3)
Quarter: 2013Q3

REPORT INFORMATION
  Report Type: Spontaneous
  Country: BR (occurrence: None)
  Receive Date: 20130422
  Receipt Date: 20130829
  Transmission Date: 20140515
  Serious: Yes (Death, Other)
  Sender: FDA-Public Use
  Company Number: DSU-2013-02917

PATIENT
  Sex: Female

DRUGS (2)
  1. OLMETEC HCT [Suspect]
     Indication: HYPERTENSION
     Dosage: 40/25MG (QD) PER ORAL
     Route: 048
     Dates: start: 20090311
  2. NORVASC [Suspect]
     Indication: HYPERTENSION
     Dosage: 5MG (5MG, QD) PER ORAL
     Route: 048
     Dates: start: 2010

REACTIONS (1)
  - Infarction [None]
